FAERS Safety Report 7757777-7 (Version None)
Quarter: 2011Q3

REPORT INFORMATION
  Report Type: 
  Country: None (occurrence: None)
  Receive Date: 20110918
  Receipt Date: 20110907
  Transmission Date: 20111222
  Serious: Yes (Hospitalization)
  Sender: FDA-Public Use
  Company Number: US-ASTRAZENECA-2011SE53820

PATIENT
  Age: 63 Year
  Sex: Female
  Weight: 77.1 kg

DRUGS (1)
  1. SEROQUEL XR [Suspect]
     Indication: MAJOR DEPRESSION
     Route: 048
     Dates: start: 20060101

REACTIONS (4)
  - DEPRESSION [None]
  - DRUG DOSE OMISSION [None]
  - WEIGHT DECREASED [None]
  - DRUG INEFFECTIVE [None]
